FAERS Safety Report 10861173 (Version 1)
Quarter: 2015Q1

REPORT INFORMATION
  Report Type: Spontaneous
  Country: US (occurrence: None)
  Receive Date: 20150218
  Receipt Date: 20150218
  Transmission Date: 20150721
  Serious: Yes (Life-Threatening, Hospitalization)
  Sender: FDA-Public Use
  Company Number: None

PATIENT
  Age: 68 Year
  Sex: Female
  Weight: 67 kg

DRUGS (28)
  1. OXYCODONE/APAP (PERCOCET) [Concomitant]
  2. VITAMIN - THERAPEUTIC MULTIVITAMINS W/MINERALS (CENTRUM SILVER,THERA-M) [Concomitant]
  3. FENTANYL (DURAGESIC) [Concomitant]
  4. PROCHLORPERAZINE. [Concomitant]
     Active Substance: PROCHLORPERAZINE
  5. PRAVASTATIN [Concomitant]
     Active Substance: PRAVASTATIN\PRAVASTATIN SODIUM
  6. OMEGA [Concomitant]
     Active Substance: CONVALLARIA MAJALIS\CRATAEGUS LAEVIGATA LEAF\PROXYPHYLLINE
  7. BENAZEPRIL (LOTENSIN) [Concomitant]
  8. LOVENOX [Concomitant]
     Active Substance: ENOXAPARIN SODIUM
  9. NEVANAC [Concomitant]
     Active Substance: NEPAFENAC
  10. ASPIRIN. [Concomitant]
     Active Substance: ASPIRIN
  11. FLUTICASONE (FLONASE) [Concomitant]
  12. FOLIC ACID (FOLATE) [Concomitant]
  13. CHOLECALCIFEROL (VITAMIN D-3) [Concomitant]
  14. LORATADINE (CLARITIN) [Concomitant]
  15. PROBIOTIC PRODUCT [Concomitant]
  16. AMLODIPINE (NORVASC) [Concomitant]
  17. NYSTATIN (MYCOSTATIN) [Concomitant]
  18. FLUCONAZOLE (DIFLUCAN) [Concomitant]
  19. CARBOPLATIN. [Suspect]
     Active Substance: CARBOPLATIN
     Indication: METASTASES TO CENTRAL NERVOUS SYSTEM
     Dosage: CYCLE
     Route: 042
  20. OMEPRAZOLE (PRILOSEC) [Concomitant]
  21. MIRALAX [Concomitant]
     Active Substance: POLYETHYLENE GLYCOL 3350
  22. SERTRALINE [Concomitant]
     Active Substance: SERTRALINE HYDROCHLORIDE
  23. CYCLOSPORINE (RESTASIS) [Concomitant]
  24. CARBOPLATIN. [Suspect]
     Active Substance: CARBOPLATIN
     Indication: LUNG ADENOCARCINOMA
     Dosage: CYCLE
     Route: 042
  25. ALBUTEROL. [Concomitant]
     Active Substance: ALBUTEROL
  26. HYPROMELLOSE (GENTEAL) [Concomitant]
  27. EZETIMIBE (ZETIA) [Concomitant]
  28. FAMOTIDINE (PEPCID) [Concomitant]

REACTIONS (8)
  - Nausea [None]
  - Decreased appetite [None]
  - Hypophagia [None]
  - Asthenia [None]
  - Diarrhoea [None]
  - Hypotension [None]
  - Abdominal discomfort [None]
  - White blood cell count abnormal [None]

NARRATIVE: CASE EVENT DATE: 20140505
